FAERS Safety Report 6123034-8 (Version None)
Quarter: 2009Q1

REPORT INFORMATION
  Report Type: 
  Country: None (occurrence: None)
  Receive Date: 20090318
  Receipt Date: 20090309
  Transmission Date: 20090719
  Serious: Yes (Hospitalization, Other)
  Sender: FDA-Public Use
  Company Number: SE-AMGEN-UK265009

PATIENT
  Sex: Male

DRUGS (14)
  1. ARANESP [Suspect]
     Indication: RENAL FAILURE CHRONIC
     Route: 058
     Dates: start: 20030310
  2. ARANESP [Suspect]
     Route: 042
     Dates: start: 20090122
  3. ASPIRIN [Concomitant]
  4. CYANOCOBALAMIN [Concomitant]
  5. IMDUR [Concomitant]
  6. AMLODIPINE [Concomitant]
  7. SIMVASTATIN [Concomitant]
  8. ALLOPURINOL [Concomitant]
  9. CIPRALEX [Concomitant]
  10. PYRIDOXIN [Concomitant]
  11. SELOKEN ZOC [Concomitant]
  12. FOLACIN [Concomitant]
  13. FURIX [Concomitant]
  14. NITROGLYCERIN [Concomitant]

REACTIONS (16)
  - ANAEMIA [None]
  - ANGINA PECTORIS [None]
  - ANTI-ERYTHROPOIETIN ANTIBODY POSITIVE [None]
  - BLOOD ALBUMIN DECREASED [None]
  - BLOOD GLUCOSE INCREASED [None]
  - BLOOD POTASSIUM DECREASED [None]
  - CARDIAC FAILURE [None]
  - DYSPNOEA [None]
  - MITRAL VALVE INCOMPETENCE [None]
  - NO THERAPEUTIC RESPONSE [None]
  - OEDEMA PERIPHERAL [None]
  - ORTHOPNOEA [None]
  - PALPITATIONS [None]
  - PULMONARY HYPERTENSION [None]
  - THERAPEUTIC RESPONSE DECREASED [None]
  - TRICUSPID VALVE INCOMPETENCE [None]
